FAERS Safety Report 17817068 (Version 1)
Quarter: 2020Q2

REPORT INFORMATION
  Report Type: Spontaneous
  Country: ID (occurrence: ID)
  Receive Date: 20200522
  Receipt Date: 20200522
  Transmission Date: 20200714
  Serious: Yes (Death, Hospitalization)
  Sender: FDA-Public Use
  Company Number: ID-NEOS THERAPEUTICS, LP-2020NEO00029

PATIENT

DRUGS (2)
  1. ALCOHOL. [Suspect]
     Active Substance: ALCOHOL
     Route: 048
  2. AMPHETAMINE [Suspect]
     Active Substance: AMPHETAMINE
     Route: 048

REACTIONS (6)
  - Seizure [Not Recovered/Not Resolved]
  - Rhabdomyolysis [Not Recovered/Not Resolved]
  - Multiple organ dysfunction syndrome [Fatal]
  - Hypoglycaemia [Not Recovered/Not Resolved]
  - Gastrointestinal haemorrhage [Not Recovered/Not Resolved]
  - Toxicity to various agents [Not Recovered/Not Resolved]
